FAERS Safety Report 4650407-2 (Version None)
Quarter: 2005Q2

REPORT INFORMATION
  Report Type: 
  Country: None (occurrence: None)
  Receive Date: 20050429
  Receipt Date: 20050415
  Transmission Date: 20051028
  Serious: Yes (Hospitalization)
  Sender: FDA-Public Use
  Company Number: CAR 2005-007

PATIENT
  Age: 2 Month
  Sex: Male

DRUGS (1)
  1. SUCRALFATE [Suspect]
     Indication: GASTROOESOPHAGEAL REFLUX DISEASE
     Dosage: 6 ML ORAL
     Route: 048
     Dates: start: 20030611

REACTIONS (3)
  - DYSPNOEA [None]
  - SOMNOLENCE [None]
  - VOMITING [None]
